FAERS Safety Report 17971013 (Version 1)
Quarter: 2020Q3

REPORT INFORMATION
  Report Type: Spontaneous
  Country: IT (occurrence: IT)
  Receive Date: 20200701
  Receipt Date: 20200701
  Transmission Date: 20201103
  Serious: Yes (Other)
  Sender: FDA-Public Use
  Company Number: NVSC2020IT183419

PATIENT
  Age: 10 Year
  Sex: Female

DRUGS (1)
  1. CANAKINUMAB. [Suspect]
     Active Substance: CANAKINUMAB
     Indication: PERICARDITIS
     Dosage: 4 MG/KG/EVERY 4 WEEKS
     Route: 065
     Dates: start: 201607, end: 201712

REACTIONS (2)
  - Pericarditis [Unknown]
  - Product use in unapproved indication [Unknown]
